FAERS Safety Report 6649651-4 (Version None)
Quarter: 2010Q1

REPORT INFORMATION
  Report Type: 
  Country: None (occurrence: None)
  Receive Date: 20100324
  Receipt Date: 20091116
  Transmission Date: 20100710
  Serious: No
  Sender: FDA-Public Use
  Company Number: US-AMGEN-KDL374797

PATIENT
  Sex: Female

DRUGS (1)
  1. NEULASTA [Suspect]
     Indication: CHEMOTHERAPY
     Route: 058

REACTIONS (4)
  - HEADACHE [None]
  - HYPERTENSION [None]
  - INJECTION SITE PAIN [None]
  - PAIN IN EXTREMITY [None]
